FAERS Safety Report 15796609 (Version 1)
Quarter: 2019Q1

REPORT INFORMATION
  Report Type: Report from Study
  Country: None (occurrence: CA)
  Receive Date: 20190108
  Receipt Date: 20190108
  Transmission Date: 20190417
  Serious: Yes (Other)
  Sender: FDA-Public Use
  Company Number: CA-ABBVIE-19K-028-2614945-00

PATIENT
  Age: 57 Year
  Sex: Female

DRUGS (1)
  1. HUMIRA [Suspect]
     Active Substance: ADALIMUMAB
     Indication: ANKYLOSING SPONDYLITIS
     Route: 058
     Dates: start: 20170930

REACTIONS (4)
  - Uterine leiomyoma [Unknown]
  - Diabetes mellitus [Unknown]
  - Arthralgia [Unknown]
  - Polyp [Unknown]

NARRATIVE: CASE EVENT DATE: 201811
